FAERS Safety Report 7340288-0 (Version None)
Quarter: 2011Q1

REPORT INFORMATION
  Report Type: 
  Country: None (occurrence: None)
  Receive Date: 20110309
  Receipt Date: 20110301
  Transmission Date: 20110831
  Serious: Yes (Other)
  Sender: FDA-Public Use
  Company Number: US-BIOGENIDEC-2011BI007693

PATIENT
  Age: 44 Year
  Sex: Female

DRUGS (1)
  1. TYSABRI [Suspect]
     Indication: MULTIPLE SCLEROSIS
     Route: 042
     Dates: start: 20101118

REACTIONS (7)
  - VISUAL ACUITY REDUCED [None]
  - MEMORY IMPAIRMENT [None]
  - INFLUENZA [None]
  - CEREBRAL ATROPHY [None]
  - HALLUCINATION [None]
  - MULTIPLE SCLEROSIS [None]
  - CONVULSION [None]
